FAERS Safety Report 7208077-5 (Version None)
Quarter: 2011Q1

REPORT INFORMATION
  Report Type: 
  Country: None (occurrence: None)
  Receive Date: 20110104
  Receipt Date: 20101229
  Transmission Date: 20110831
  Serious: No
  Sender: FDA-Public Use
  Company Number: US-PFIZER INC-2010182415

PATIENT
  Age: 48 Year
  Sex: Female

DRUGS (1)
  1. EFFEXOR [Suspect]
     Indication: SACROILIITIS
     Dosage: 18.5 MG, UNK

REACTIONS (1)
  - VAGINAL HAEMORRHAGE [None]
